FAERS Safety Report 4528530-2 (Version None)
Quarter: 2004Q4

REPORT INFORMATION
  Report Type: 
  Country: None (occurrence: None)
  Receive Date: 20041216
  Receipt Date: 20040820
  Transmission Date: 20050328
  Serious: No
  Sender: FDA-Public Use
  Company Number: US-BRISTOL-MYERS SQUIBB COMPANY-12679049

PATIENT
  Age: 53 Year
  Sex: Female
  Weight: 84 kg

DRUGS (5)
  1. CHOLESTYRAMINE [Suspect]
     Indication: LOOSE STOOLS
     Dosage: ALSO TOOK LAST YEAR FOR 2 WEEKS (UNSPECIFIED DATES) AND EXPERIENCED HEARTBURN.
     Route: 048
  2. ESTRATEST H.S. [Concomitant]
  3. IBUPROFEN [Concomitant]
  4. VITAMIN E [Concomitant]
  5. VITAMIN B COMPLEX CAP [Concomitant]

REACTIONS (1)
  - DYSPEPSIA [None]
